FAERS Safety Report 11198150 (Version 1)
Quarter: 2015Q2

REPORT INFORMATION
  Report Type: Other
  Country: US (occurrence: US)
  Receive Date: 20150618
  Receipt Date: 20150618
  Transmission Date: 20150821
  Serious: No
  Sender: FDA-Public Use
  Company Number: US-LUPIN PHARMACEUTICALS INC.-2015-01035

PATIENT
  Age: 64 Year
  Sex: Male
  Weight: 96 kg

DRUGS (14)
  1. PHENYTOIN. [Interacting]
     Active Substance: PHENYTOIN
     Route: 042
  2. PHENYTOIN. [Interacting]
     Active Substance: PHENYTOIN
     Route: 048
  3. ISONIAZID. [Concomitant]
     Active Substance: ISONIAZID
     Indication: TUBERCULOSIS
     Route: 048
  4. FOSPHENYTOIN [Interacting]
     Active Substance: FOSPHENYTOIN\FOSPHENYTOIN SODIUM
     Route: 042
  5. PHENYTOIN. [Interacting]
     Active Substance: PHENYTOIN
     Route: 048
  6. LEVETIRACETAM. [Interacting]
     Active Substance: LEVETIRACETAM
     Indication: STATUS EPILEPTICUS
     Route: 048
  7. ETHAMBUTOL [Concomitant]
     Active Substance: ETHAMBUTOL HYDROCHLORIDE
     Indication: TUBERCULOSIS
     Route: 048
  8. LACOSAMIDE [Concomitant]
     Active Substance: LACOSAMIDE
     Indication: STATUS EPILEPTICUS
     Route: 048
  9. PHENYTOIN. [Interacting]
     Active Substance: PHENYTOIN
     Route: 048
  10. PHENYTOIN. [Interacting]
     Active Substance: PHENYTOIN
     Indication: SEIZURE
     Route: 048
  11. PYRAZINAMIDE. [Concomitant]
     Active Substance: PYRAZINAMIDE
     Indication: TUBERCULOSIS
     Route: 048
  12. FOSPHENYTOIN [Interacting]
     Active Substance: FOSPHENYTOIN\FOSPHENYTOIN SODIUM
     Indication: SEIZURE
     Dosage: LOADING DOSE: 1720MG (17MG/KG)
     Route: 042
  13. PHENYTOIN. [Interacting]
     Active Substance: PHENYTOIN
     Route: 048
  14. RIFAMPICIN [Suspect]
     Active Substance: RIFAMPIN
     Indication: SEIZURE
     Route: 048

REACTIONS (2)
  - Drug interaction [Recovered/Resolved]
  - Drug level decreased [Recovered/Resolved]
